FAERS Safety Report 26177835 (Version 1)
Quarter: 2025Q4

REPORT INFORMATION
  Report Type: Spontaneous
  Country: US (occurrence: US)
  Receive Date: 20251219
  Receipt Date: 20251219
  Transmission Date: 20260117
  Serious: Yes (Life-Threatening, Hospitalization)
  Sender: PROCTER AND GAMBLE
  Company Number: US-MLMSERVICE-20251201-PI734185-00118-1

PATIENT
  Age: 6 Day
  Sex: Male

DRUGS (3)
  1. DEXTROMETHORPHAN [Suspect]
     Active Substance: DEXTROMETHORPHAN
     Indication: Hyperglycinaemia
     Dosage: UNK
  2. DEXTROMETHORPHAN [Suspect]
     Active Substance: DEXTROMETHORPHAN
     Dosage: DOSE WAS DECREASED
  3. SODIUM BENZOATE [Concomitant]
     Active Substance: SODIUM BENZOATE
     Indication: Hyperglycinaemia
     Dosage: UNK

REACTIONS (3)
  - Bradypnoea [Recovering/Resolving]
  - Product use in unapproved indication [Unknown]
  - Off label use [Unknown]
